FAERS Safety Report 26074978 (Version 1)
Quarter: 2025Q4

REPORT INFORMATION
  Report Type: Spontaneous
  Country: US (occurrence: None)
  Receive Date: 20251120
  Receipt Date: 20251120
  Transmission Date: 20260117
  Serious: Yes (Disabling, Other)
  Sender: FDA-CTU
  Company Number: None

PATIENT
  Age: 45 Year
  Sex: Female
  Weight: 45 kg

DRUGS (4)
  1. LEVOFLOXACIN [Suspect]
     Active Substance: LEVOFLOXACIN
     Indication: Urinary tract infection pseudomonal
     Dosage: OTHER QUANTITY : 1 TABLET(S);?FREQUENCY : DAILY;?
     Route: 048
     Dates: start: 20250826, end: 20250828
  2. CIPROFLOXACIN [Suspect]
     Active Substance: CIPROFLOXACIN
  3. Levofloxazine [Concomitant]
  4. norethindrone-ethinyl estradiol 1-0.035 mg per tablet [Concomitant]

REACTIONS (10)
  - Myalgia [None]
  - Burning sensation [None]
  - Electric shock sensation [None]
  - Nausea [None]
  - Pain in extremity [None]
  - Anxiety [None]
  - Headache [None]
  - Gait disturbance [None]
  - Tendonitis [None]
  - Arthralgia [None]

NARRATIVE: CASE EVENT DATE: 20250826
